FAERS Safety Report 7091557-3 (Version None)
Quarter: 2010Q4

REPORT INFORMATION
  Report Type: 
  Country: None (occurrence: None)
  Receive Date: 20101109
  Receipt Date: 20101027
  Transmission Date: 20110411
  Serious: Yes (Other)
  Sender: FDA-Public Use
  Company Number: PHEH2006US12894

PATIENT
  Sex: Male
  Weight: 81.633 kg

DRUGS (32)
  1. ZOMETA [Suspect]
     Dosage: 4MG
     Route: 042
     Dates: start: 20040101, end: 20050901
  2. LUPRON [Concomitant]
  3. CASODEX [Concomitant]
     Dosage: UNK
     Dates: start: 20040101
  4. ANTIBIOTICS [Concomitant]
  5. XYZAL [Concomitant]
  6. CODEINE [Concomitant]
  7. MONOPRIL [Concomitant]
     Route: 048
  8. LEVAQUIN [Concomitant]
     Dosage: 500 MG, QD
     Route: 048
  9. FLOMAX [Concomitant]
     Dosage: 0.4 MG
     Route: 048
  10. CIPRO [Concomitant]
     Dosage: 500 MG, QD
     Route: 048
  11. CLINDAMYCIN [Concomitant]
     Dosage: 1 DF, QD
     Route: 048
  12. HYDROCODONE [Concomitant]
  13. CHLORHEXIDINE GLUCONATE [Concomitant]
  14. HYDROCHLOROTHIAZIDE [Concomitant]
  15. TRIAMTEREN [Concomitant]
     Route: 048
  16. LIPITOR [Concomitant]
     Dosage: 1 DF, QD
  17. TOPROL-XL [Concomitant]
     Dosage: 1 DF, QD
  18. NIFEREX (POLYSACCHARIDE-IRON COMPLEX) [Concomitant]
     Dosage: 1 DF, QD
  19. FOLIC ACID [Concomitant]
  20. NASACORT [Concomitant]
     Dosage: 2 SPRAY EACH NOSTRIL
     Route: 045
  21. RHINOCORT [Concomitant]
     Dosage: 1 SPRAY EACH NOSTRIL
     Route: 045
  22. PREVACID [Concomitant]
     Dosage: 1 DF, BID
     Route: 048
  23. DOXYCYCLINE [Concomitant]
     Dosage: 1 DF, QD
     Route: 048
  24. AVELOX [Concomitant]
     Dosage: 1 DF, QD
     Route: 048
  25. FLUCONAZOLE [Concomitant]
     Dosage: 1 DF, QD
     Route: 048
  26. OFLOXACIN [Concomitant]
  27. METOPROLOL [Concomitant]
     Dosage: 1 DF, QD
     Route: 048
  28. AMPICILLIN [Concomitant]
     Dosage: 1 DF, QD
     Route: 048
  29. LORAZEPAM [Concomitant]
  30. ASTELIN [Concomitant]
     Dosage: 1 SPRAY
     Route: 048
  31. CLODERM [Concomitant]
     Dosage: APPLY TWICE DAILY
     Route: 061
  32. PROTOPIC [Concomitant]
     Dosage: APPLY TWICE DAILY
     Route: 061

REACTIONS (37)
  - ANAEMIA [None]
  - AORTIC ANEURYSM [None]
  - BACK PAIN [None]
  - BONE DEBRIDEMENT [None]
  - DEAFNESS [None]
  - EAR DISORDER [None]
  - FACIAL PAIN [None]
  - FLANK PAIN [None]
  - GINGIVAL DISORDER [None]
  - HYPERBARIC OXYGEN THERAPY [None]
  - IMPAIRED HEALING [None]
  - INFLAMMATION [None]
  - INTERVERTEBRAL DISC DEGENERATION [None]
  - INTERVERTEBRAL DISC PROTRUSION [None]
  - LARYNGITIS [None]
  - LUMBAR SPINE FLATTENING [None]
  - MITRAL VALVE INCOMPETENCE [None]
  - NASAL CONGESTION [None]
  - NASAL TURBINATE HYPERTROPHY [None]
  - OPEN WOUND [None]
  - OSTEOARTHRITIS [None]
  - OSTEOMYELITIS [None]
  - OSTEONECROSIS OF JAW [None]
  - PAIN IN JAW [None]
  - PURULENT DISCHARGE [None]
  - RENAL CYST [None]
  - RHINITIS [None]
  - SCOLIOSIS [None]
  - SERRATIA INFECTION [None]
  - SINUS OPERATION [None]
  - SWELLING FACE [None]
  - TENDONITIS [None]
  - TINNITUS [None]
  - TOOTH DISORDER [None]
  - TOOTH EXTRACTION [None]
  - TRICUSPID VALVE INCOMPETENCE [None]
  - UPPER-AIRWAY COUGH SYNDROME [None]
